FAERS Safety Report 12616114 (Version 1)
Quarter: 2016Q3

REPORT INFORMATION
  Report Type: Spontaneous
  Country: US (occurrence: US)
  Receive Date: 20160802
  Receipt Date: 20160802
  Transmission Date: 20161109
  Serious: No
  Sender: FDA-Public Use
  Company Number: US-ASTRAZENECA-2016SE60535

PATIENT
  Sex: Male

DRUGS (2)
  1. SYMBICORT [Suspect]
     Active Substance: BUDESONIDE\FORMOTEROL FUMARATE DIHYDRATE
     Dosage: DOSE: 160 MCG / 4.5 MCG, 2 PUFFS, FREQUENCY: FOUR TIMES A DAY
     Route: 055
     Dates: start: 20160507
  2. SYMBICORT [Suspect]
     Active Substance: BUDESONIDE\FORMOTEROL FUMARATE DIHYDRATE
     Dosage: DOSE: 160 MCG / 4.5 MCG, 2 PUFFS, FREQUENCY: TWO TIMES A DAY
     Route: 055

REACTIONS (8)
  - Dizziness [Unknown]
  - Back pain [Unknown]
  - Headache [Unknown]
  - Blood glucose increased [Unknown]
  - Abdominal pain upper [Unknown]
  - Intentional product misuse [Unknown]
  - Vomiting [Unknown]
  - Fatigue [Unknown]

NARRATIVE: CASE EVENT DATE: 20160601
